FAERS Safety Report 5742674-9 (Version None)
Quarter: 2008Q2

REPORT INFORMATION
  Report Type: 
  Country: None (occurrence: None)
  Receive Date: 20080519
  Receipt Date: 20080416
  Transmission Date: 20081010
  Serious: No
  Sender: FDA-Public Use
  Company Number: US-BAYER-200716917NA

PATIENT
  Age: 65 Year
  Sex: Female
  Weight: 61 kg

DRUGS (6)
  1. ULTRAVIST 300 [Suspect]
     Indication: COMPUTERISED TOMOGRAM
     Dosage: TOTAL DAILY DOSE: 90 ML  UNIT DOSE: 300 ML
     Route: 042
     Dates: start: 20071121, end: 20071121
  2. AMOXICILLIN [Concomitant]
  3. MORPHINE [Concomitant]
  4. NITROGLYCERIN [Concomitant]
  5. ISOSORBIDE DINITRATE [Concomitant]
  6. CONTRAST MEDIA [Concomitant]
     Route: 048

REACTIONS (1)
  - CONTRAST MEDIA REACTION [None]
